FAERS Safety Report 5974213-1 (Version None)
Quarter: 2008Q4

REPORT INFORMATION
  Report Type: 
  Country: None (occurrence: None)
  Receive Date: 20081201
  Receipt Date: 20081126
  Transmission Date: 20090506
  Serious: Yes (Other)
  Sender: FDA-Public Use
  Company Number: DE-PFIZER INC-2008077875

PATIENT
  Sex: Female

DRUGS (1)
  1. DOSTINEX [Suspect]
     Indication: PROLACTINOMA
     Dates: start: 20020101

REACTIONS (2)
  - LEUKOPENIA [None]
  - VIRAL MYOCARDITIS [None]
